FAERS Safety Report 7851471-X (Version None)
Quarter: 2011Q4

REPORT INFORMATION
  Report Type: 
  Country: None (occurrence: None)
  Receive Date: 20111021
  Receipt Date: 20111010
  Transmission Date: 20120403
  Serious: Yes (Disabling, Other)
  Sender: FDA-Public Use
  Company Number: GB-ACCORD-010966

PATIENT
  Age: 65 Year
  Sex: Male

DRUGS (3)
  1. PREDNISOLONE [Suspect]
     Indication: IMMUNOSUPPRESSION
     Dosage: ORAL
     Route: 048
  2. MYCOPHENOLATE MOFETIL [Suspect]
     Indication: IMMUNOSUPPRESSION
     Dosage: ORAL
     Route: 048
  3. TACROLIMUS [Suspect]
     Indication: IMMUNOSUPPRESSION
     Dosage: ORAL
     Route: 048

REACTIONS (10)
  - PATHOGEN RESISTANCE [None]
  - OSTEONECROSIS [None]
  - INFECTION SUSCEPTIBILITY INCREASED [None]
  - SINUSITIS [None]
  - VISION BLURRED [None]
  - CONJUNCTIVAL OEDEMA [None]
  - PURULENCE [None]
  - PERIORBITAL ABSCESS [None]
  - EXOPHTHALMOS [None]
  - PSEUDOMONAS INFECTION [None]
